FAERS Safety Report 12895768 (Version 2)
Quarter: 2016Q4

REPORT INFORMATION
  Report Type: Spontaneous
  Country: GB (occurrence: GB)
  Receive Date: 20161031
  Receipt Date: 20161114
  Transmission Date: 20170207
  Serious: Yes (Hospitalization)
  Sender: FDA-Public Use
  Company Number: GB-AUROBINDO-AUR-APL-2016-13234

PATIENT
  Age: 53 Year
  Sex: Female
  Weight: 62.13 kg

DRUGS (6)
  1. NAPROXEN. [Suspect]
     Active Substance: NAPROXEN
     Indication: ARTHRITIS
     Route: 048
  2. OMEPRAZOLE. [Concomitant]
     Active Substance: OMEPRAZOLE
     Indication: PRODUCT USED FOR UNKNOWN INDICATION
     Dosage: 20 MG, IN THE MORNING
     Route: 065
  3. OMEPRAZOLE. [Concomitant]
     Active Substance: OMEPRAZOLE
     Dosage: IN THE MORNING (AS REQUIRED)
     Route: 065
  4. AMLODIPINE [Concomitant]
     Active Substance: AMLODIPINE BESYLATE
     Indication: HYPERTENSION
     Route: 065
  5. ZOLPIDEM [Concomitant]
     Active Substance: ZOLPIDEM\ZOLPIDEM TARTRATE
     Indication: PRODUCT USED FOR UNKNOWN INDICATION
     Route: 065
  6. NAPROXEN TABLET 500 MG [Suspect]
     Active Substance: NAPROXEN
     Indication: ARTHRITIS
     Dosage: 500 MG, TWO TIMES A DAY
     Route: 048

REACTIONS (5)
  - Fibrosis [Unknown]
  - Duodenal ulcer perforation [Recovering/Resolving]
  - Abdominal pain [Unknown]
  - Peritonitis [Unknown]
  - Vomiting [Unknown]

NARRATIVE: CASE EVENT DATE: 20161004
